FAERS Safety Report 9990132 (Version 1)
Quarter: 2014Q1

REPORT INFORMATION
  Report Type: Report from Study
  Country: US (occurrence: US)
  Receive Date: 20140310
  Receipt Date: 20140310
  Transmission Date: 20141002
  Serious: No
  Sender: FDA-Public Use
  Company Number: US-ABBVIE-13P-163-1130234-00

PATIENT
  Age: 23 Year
  Sex: Female

DRUGS (4)
  1. HUMIRA [Suspect]
     Indication: CROHN^S DISEASE
     Dates: start: 20130722, end: 20130722
  2. HUMIRA [Suspect]
     Dates: start: 20130805
  3. PREDNISONE [Concomitant]
     Indication: CROHN^S DISEASE
     Dosage: 40 MG DAILY
     Dates: start: 20130722, end: 20130722
  4. PREDNISONE [Concomitant]
     Dosage: 30 MG DAILY (TAPERED DOWN)
     Dates: start: 20130804

REACTIONS (1)
  - Injection site vesicles [Recovering/Resolving]
